FAERS Safety Report 5212629-1 (Version None)
Quarter: 2006Q4

REPORT INFORMATION
  Report Type: 
  Country: None (occurrence: None)
  Receive Date: 20061115
  Receipt Date: 20060724
  Transmission Date: 20070319
  Serious: No
  Sender: FDA-Public Use
  Company Number: 200618412US

PATIENT
  Age: 69 Year
  Sex: Female

DRUGS (15)
  1. APIDRA [Suspect]
     Indication: GLYCOSYLATED HAEMOGLOBIN INCREASED
     Dosage: TID
     Dates: start: 20060528
  2. APIDRA [Suspect]
     Indication: GLYCOSYLATED HAEMOGLOBIN INCREASED
     Dosage: 13 U BID
  3. OPTICLIK [Suspect]
  4. ZOCOR [Concomitant]
  5. ZETIA [Concomitant]
  6. NEURONTIN [Concomitant]
  7. SYNTHROID [Concomitant]
  8. FUROSEMIDE (LASIX 00032601)) [Concomitant]
  9. ACETYSALICYLIC ACID (ASA) [Concomitant]
  10. SECTRAL [Concomitant]
  11. BENTYL [Concomitant]
  12. TEGASEROD [Concomitant]
  13. DOCUSATE CALCIUM (SURFAX) [Concomitant]
  14. INSULIN HUMAN, INSULIN HUMAN INJECTION, ISOPHANE (NOVOLIN 70/30) [Concomitant]
  15. INSULIN HUMAN INJECTION, ISOPHANE (NOVOLIN N) [Concomitant]

REACTIONS (3)
  - BLOOD GLUCOSE DECREASED [None]
  - BLOOD GLUCOSE INCREASED [None]
  - VISION BLURRED [None]
